FAERS Safety Report 5583569-3 (Version None)
Quarter: 2007Q4

REPORT INFORMATION
  Report Type: 
  Country: None (occurrence: None)
  Receive Date: 20071231
  Receipt Date: 20071217
  Transmission Date: 20080405
  Serious: Yes (Hospitalization, Other)
  Sender: FDA-Public Use
  Company Number: CLOF-10784

PATIENT
  Age: 60 Year
  Sex: Male
  Weight: 107.8 kg

DRUGS (21)
  1. CLOFARABINE (CLOFARABINE) SOLUTION FOR INFUSION [Suspect]
     Indication: ACUTE MYELOID LEUKAEMIA
     Dosage: QDX5, INTRAVENOUS
     Route: 042
     Dates: start: 20071106, end: 20071110
  2. CYTARABINE [Suspect]
     Indication: ACUTE MYELOID LEUKAEMIA
     Dosage: 0, QDX5, INTRAVENOUS
     Route: 042
     Dates: start: 20071106, end: 20071110
  3. OCTREOTIDE ACETATE [Concomitant]
  4. MORPHINE [Concomitant]
  5. HYDROCORTISONE (SALICYLIC ACID) [Concomitant]
  6. CEFEPIME [Concomitant]
  7. ZOLOFT [Concomitant]
  8. TRIAMCINOLONE [Concomitant]
  9. PREGABALIN (PREGABALIN) [Concomitant]
  10. OXYCODONE HCL [Concomitant]
  11. ALLOPURINOL [Concomitant]
  12. PROTONIX [Concomitant]
  13. BENEFIBER (CYAMOPSIS TETRAGONOLOBA GUM) [Concomitant]
  14. TYLENOL (PARACETAMOL, PSEUDOEPHEDRINE HYDROCHLORIDE) [Concomitant]
  15. DIPHENHYDRAMINE (DIPHENHYDRAMINE, SODIUM CITRATE) [Concomitant]
  16. MICAFUNGIN (MICAFUNGIN) [Concomitant]
  17. MANNITOL [Concomitant]
  18. DOXYCYCLINE (DOXYCYCLINE HYDROCHLORIDE) [Concomitant]
  19. FENTANYL CITRATE [Concomitant]
  20. ATENOLOL [Concomitant]
  21. ZOFRAN [Concomitant]

REACTIONS (7)
  - ANAPHYLACTIC REACTION [None]
  - DIALYSIS [None]
  - FEBRILE NEUTROPENIA [None]
  - GASTROINTESTINAL HAEMORRHAGE [None]
  - MENTAL STATUS CHANGES [None]
  - RENAL FAILURE ACUTE [None]
  - SKIN TOXICITY [None]
